FAERS Safety Report 10014519 (Version 2)
Quarter: 2014Q2

REPORT INFORMATION
  Report Type: Spontaneous
  Country: JP (occurrence: JP)
  Receive Date: 20140317
  Receipt Date: 20140506
  Transmission Date: 20141212
  Serious: Yes (Death)
  Sender: FDA-Public Use
  Company Number: JP-MALLINCKRODT-T201401543

PATIENT
  Age: 56 Year
  Sex: Female
  Weight: 42.85 kg

DRUGS (16)
  1. METHADONE [Suspect]
     Indication: CANCER PAIN
     Dosage: 5 MG, (15 MG DAILY DOSE)
     Route: 048
     Dates: start: 20130718, end: 20130724
  2. METHADONE [Suspect]
     Dosage: 10 MG, (20 MG DAILY DOSE)
     Route: 048
     Dates: start: 20130725, end: 20130904
  3. METHADONE [Suspect]
     Dosage: 10 MG, (30 MG DAILY DOSE)
     Route: 048
     Dates: start: 20130905, end: 20131023
  4. METHADONE [Suspect]
     Dosage: 20 MG, (40 MG DAILY DOSE)
     Route: 048
     Dates: start: 20131024, end: 20140108
  5. OPSO [Concomitant]
     Dosage: 10 MG, PRN
     Route: 048
     Dates: start: 20130717
  6. LANSOPRAZOLE [Concomitant]
     Dosage: 15 MG, UNK
     Route: 048
     Dates: start: 20121206, end: 20140108
  7. NAIXAN [Concomitant]
     Dosage: 400 MG, UNK
     Route: 048
     Dates: start: 20121212, end: 20131003
  8. REFLEX [Concomitant]
     Dosage: 15 MG, UNK
     Route: 048
     Dates: start: 20130722, end: 20130912
  9. TOCLASE [Concomitant]
     Dosage: 60 MG, UNK
     Route: 048
     Dates: start: 20130613, end: 20130719
  10. BROTIZOLAM [Concomitant]
     Dosage: 0.25 MG, UNK
     Route: 048
     Dates: start: 20130725, end: 20140108
  11. TETRAMIDE [Concomitant]
     Dosage: 10 MG, UNK
     Route: 048
     Dates: start: 20130725, end: 20140108
  12. MERISLON [Concomitant]
     Dosage: 18 MG, UNK
     Route: 048
     Dates: start: 20130823, end: 20140108
  13. SERENACE [Concomitant]
     Dosage: 0.345 MG, UNK
     Route: 048
     Dates: start: 20130912, end: 20140108
  14. SORELMON [Concomitant]
     Dosage: 75 UNK, UNK
     Route: 048
     Dates: start: 20131003, end: 20140108
  15. RINDERON [Concomitant]
     Dosage: 1 MG, UNK
     Route: 048
     Dates: start: 20131017, end: 20140108
  16. METHYLCOBALAMIN [Concomitant]
     Dosage: 1500 MG, UNK
     Route: 048
     Dates: start: 20131017, end: 20140108

REACTIONS (3)
  - Disease progression [Fatal]
  - Delirium [Recovering/Resolving]
  - Dizziness [Recovering/Resolving]
